FAERS Safety Report 8011097-4 (Version None)
Quarter: 2011Q4

REPORT INFORMATION
  Report Type: 
  Country: None (occurrence: None)
  Receive Date: 20111228
  Receipt Date: 20111208
  Transmission Date: 20120403
  Serious: Yes (Hospitalization, Other)
  Sender: FDA-Public Use
  Company Number: SE-ROCHE-1023736

PATIENT
  Sex: Male

DRUGS (5)
  1. SELOKEEN ZOC [Concomitant]
  2. LUCENTIS [Suspect]
     Dosage: 10 MG/ML
     Route: 050
     Dates: start: 20110830
  3. LUCENTIS [Suspect]
     Indication: AGE-RELATED MACULAR DEGENERATION
     Dosage: 10 MG/ML
     Route: 050
  4. HYDROXOCOBALAMIN [Concomitant]
  5. ASPIRIN [Suspect]
     Indication: CARDIAC DISORDER

REACTIONS (2)
  - FALL [None]
  - SUBDURAL HAEMATOMA [None]
